FAERS Safety Report 4709246-6 (Version None)
Quarter: 2005Q3

REPORT INFORMATION
  Report Type: 
  Country: None (occurrence: None)
  Receive Date: 20050706
  Receipt Date: 20050627
  Transmission Date: 20060218
  Serious: Yes (Hospitalization)
  Sender: FDA-Public Use
  Company Number: UKP05000230

PATIENT
  Age: 74 Year
  Sex: Male

DRUGS (7)
  1. ASACOL [Suspect]
     Indication: COLITIS ULCERATIVE
     Dosage: 800 MG, DAILY, ORAL; 2400 MG, DAILY, ORAL
     Route: 048
     Dates: start: 20041201
  2. PREDNISOLONE SODIUM PHOSPHATE [Suspect]
     Dosage: RECTAL
     Route: 054
  3. RAMIPRIL [Concomitant]
  4. ACETYLSALICYLIC ACID (ACETYLSLICYLIC ACID) [Concomitant]
  5. ATENOLOL [Concomitant]
  6. CHOLESTEROL- AND TRIGLYCERIDE REDUCERS [Concomitant]
  7. DRUG USED IN DIABETES [Concomitant]

REACTIONS (5)
  - BLOOD GLUCOSE INCREASED [None]
  - COLITIS ULCERATIVE [None]
  - CONDITION AGGRAVATED [None]
  - DRUG INEFFECTIVE [None]
  - HAEMORRHAGE [None]
